FAERS Safety Report 18523385 (Version 1)
Quarter: 2020Q4

REPORT INFORMATION
  Report Type: Spontaneous
  Country: US (occurrence: US)
  Receive Date: 20201119
  Receipt Date: 20201119
  Transmission Date: 20210114
  Serious: Yes (Other)
  Sender: FDA-Public Use
  Company Number: US-PFIZER INC-2020453480

PATIENT
  Age: 70 Year
  Sex: Female

DRUGS (1)
  1. PREMARIN [Suspect]
     Active Substance: ESTROGENS, CONJUGATED
     Indication: EUSTACHIAN TUBE PATULOUS
     Dosage: UNK, 3X/DAY
     Route: 045

REACTIONS (3)
  - Off label use [Unknown]
  - Vaginal haemorrhage [Unknown]
  - Incorrect route of product administration [Unknown]
